FAERS Safety Report 20246984 (Version 1)
Quarter: 2021Q4

REPORT INFORMATION
  Report Type: Spontaneous
  Country: CO (occurrence: CO)
  Receive Date: 20211229
  Receipt Date: 20211229
  Transmission Date: 20220303
  Serious: Yes (Other)
  Sender: FDA-Public Use
  Company Number: CO-AMGEN-COLSP2021203676

PATIENT
  Age: 58 Year
  Sex: Female
  Weight: 70 kg

DRUGS (5)
  1. MVASI [Suspect]
     Active Substance: BEVACIZUMAB-AWWB
     Indication: Lung neoplasm malignant
     Dosage: 525 MILLIGRAM
     Route: 042
     Dates: start: 201908, end: 202001
  2. MVASI [Suspect]
     Active Substance: BEVACIZUMAB-AWWB
     Dosage: 525 MILLIGRAM
     Route: 042
     Dates: start: 20210401
  3. CAPECITABINE [Concomitant]
     Active Substance: CAPECITABINE
     Indication: Lung neoplasm malignant
     Dosage: 3560 MILLIGRAM, 1-14 DAYS
     Route: 048
     Dates: start: 20210401
  4. FOLFIRI BEVACIZUMAB [Concomitant]
     Dosage: UNK
  5. FLUOROURACIL\LEUCOVORIN CALCIUM\OXALIPLATIN [Concomitant]
     Active Substance: FLUOROURACIL\LEUCOVORIN CALCIUM\OXALIPLATIN
     Dosage: UNK

REACTIONS (2)
  - Toxic neuropathy [Unknown]
  - Dermatitis [Not Recovered/Not Resolved]

NARRATIVE: CASE EVENT DATE: 20211001
